FAERS Safety Report 6160740-3 (Version None)
Quarter: 2009Q2

REPORT INFORMATION
  Report Type: 
  Country: None (occurrence: None)
  Receive Date: 20090420
  Receipt Date: 20090318
  Transmission Date: 20091009
  Serious: Yes (Hospitalization)
  Sender: FDA-Public Use
  Company Number: US-PFIZER INC-2009179851

PATIENT
  Sex: Female
  Weight: 56.245 kg

DRUGS (2)
  1. LYRICA [Suspect]
     Indication: FIBROMYALGIA
     Dates: start: 20070101, end: 20080801
  2. OXYCODONE [Concomitant]
     Dosage: UNK

REACTIONS (14)
  - ARTHRALGIA [None]
  - DYSPHEMIA [None]
  - EATING DISORDER [None]
  - GASTRIC DISORDER [None]
  - ILEUS [None]
  - IRRITABLE BOWEL SYNDROME [None]
  - MEMORY IMPAIRMENT [None]
  - MENTAL IMPAIRMENT [None]
  - MIGRAINE [None]
  - PAIN [None]
  - SOMNOLENCE [None]
  - SPEECH DISORDER [None]
  - TREMOR [None]
  - WITHDRAWAL SYNDROME [None]
